FAERS Safety Report 17690767 (Version 1)
Quarter: 2020Q2

REPORT INFORMATION
  Report Type: Spontaneous
  Country: ES (occurrence: ES)
  Receive Date: 20200421
  Receipt Date: 20200421
  Transmission Date: 20200714
  Serious: Yes (Hospitalization, Other)
  Sender: FDA-Public Use
  Company Number: ES-AUROBINDO-AUR-APL-2020-018793

PATIENT
  Age: 19 Year
  Sex: Male

DRUGS (3)
  1. METRONIDAZOLE. [Suspect]
     Active Substance: METRONIDAZOLE
     Indication: CROHN^S DISEASE
     Dosage: 250 MILLIGRAM, 3 TIMES A DAY
     Route: 065
  2. MESALAZINE [Concomitant]
     Active Substance: MESALAMINE
     Indication: CROHN^S DISEASE
     Dosage: 2 GRAM, TWO TIMES A DAY
     Route: 065
  3. OMEPRAZOLE. [Concomitant]
     Active Substance: OMEPRAZOLE
     Indication: CROHN^S DISEASE
     Dosage: 20 MILLIGRAM, ONCE A DAY
     Route: 065

REACTIONS (10)
  - Liver function test abnormal [Unknown]
  - Peripheral motor neuropathy [Not Recovered/Not Resolved]
  - Gait disturbance [Recovering/Resolving]
  - Hypoaesthesia [Unknown]
  - Neurotoxicity [Recovering/Resolving]
  - Hyperreflexia [Recovering/Resolving]
  - Central nervous system lesion [Recovered/Resolved]
  - Dysarthria [Recovering/Resolving]
  - Peripheral sensory neuropathy [Not Recovered/Not Resolved]
  - Paraesthesia [Not Recovered/Not Resolved]
